FAERS Safety Report 4466854-8 (Version None)
Quarter: 2004Q4

REPORT INFORMATION
  Report Type: 
  Country: None (occurrence: None)
  Receive Date: 20041001
  Receipt Date: 20040923
  Transmission Date: 20050328
  Serious: Yes (Hospitalization)
  Sender: FDA-Public Use
  Company Number: US-2004-032423

PATIENT
  Age: 52 Year
  Sex: Female

DRUGS (3)
  1. ULTRAVIST 300 [Suspect]
     Indication: COMPUTERISED TOMOGRAM
     Dosage: SEE IMAGE
     Route: 042
     Dates: start: 20040923, end: 20040923
  2. ULTRAVIST 300 [Suspect]
     Indication: COMPUTERISED TOMOGRAM
     Dosage: SEE IMAGE
     Route: 042
     Dates: start: 20040923, end: 20040923
  3. ULTRAVIST 300 [Suspect]

REACTIONS (2)
  - INJECTION SITE EXTRAVASATION [None]
  - URTICARIA GENERALISED [None]
